FAERS Safety Report 19192676 (Version 2)
Quarter: 2021Q2

REPORT INFORMATION
  Report Type: Report from Study
  Country: US (occurrence: US)
  Receive Date: 20210428
  Receipt Date: 20210526
  Transmission Date: 20210717
  Serious: Yes (Hospitalization)
  Sender: FDA-Public Use
  Company Number: US-SEATTLE GENETICS-2021SGN01378

PATIENT
  Sex: Female

DRUGS (1)
  1. TUCATINIB [Suspect]
     Active Substance: TUCATINIB
     Indication: HER2 POSITIVE BREAST CANCER
     Dosage: 150 MG TABLETS

REACTIONS (5)
  - Diarrhoea [Unknown]
  - Nausea [Unknown]
  - Hospitalisation [Unknown]
  - Disease progression [Unknown]
  - Drug ineffective [Unknown]
